FAERS Safety Report 20620812 (Version 1)
Quarter: 2022Q1

REPORT INFORMATION
  Report Type: Report from Study
  Country: US (occurrence: US)
  Receive Date: 20220322
  Receipt Date: 20220322
  Transmission Date: 20220424
  Serious: Yes (Other)
  Sender: FDA-Public Use
  Company Number: US-JNJFOC-20211142411

PATIENT
  Age: 21 Year
  Sex: Male
  Weight: 70.824 kg

DRUGS (3)
  1. INVEGA SUSTENNA [Suspect]
     Active Substance: PALIPERIDONE PALMITATE
     Indication: Schizophrenia
     Dosage: 29OCT2021 OR 30OCT2021
     Route: 030
     Dates: start: 202110
  2. INVEGA SUSTENNA [Suspect]
     Active Substance: PALIPERIDONE PALMITATE
  3. INVEGA SUSTENNA [Suspect]
     Active Substance: PALIPERIDONE PALMITATE

REACTIONS (12)
  - Suicidal ideation [Unknown]
  - Erectile dysfunction [Unknown]
  - Cognitive disorder [Unknown]
  - Depressed mood [Unknown]
  - Loss of libido [Unknown]
  - Fatigue [Unknown]
  - Vision blurred [Unknown]
  - Dysarthria [Unknown]
  - Weight increased [Unknown]
  - Dry skin [Unknown]
  - Asthenia [Unknown]
  - Feeling abnormal [Unknown]

NARRATIVE: CASE EVENT DATE: 20211001
